FAERS Safety Report 8050330-X (Version None)
Quarter: 2012Q1

REPORT INFORMATION
  Report Type: 
  Country: None (occurrence: None)
  Receive Date: 20120111
  Receipt Date: 20111228
  Transmission Date: 20120608
  Serious: Yes (Death, Life-Threatening, Hospitalization, Other)
  Sender: FDA-Public Use
  Company Number: 2011MA018106

PATIENT
  Sex: Female
  Weight: 61.6892 kg

DRUGS (49)
  1. ACTONEL [Concomitant]
  2. ASPIRIN [Concomitant]
  3. CALCIUM [Concomitant]
  4. COREG [Concomitant]
  5. FLU SHOT [Concomitant]
  6. LEVAQUIN [Concomitant]
  7. SPIRIVA [Concomitant]
  8. SPIRONOLACTONE [Concomitant]
  9. VITAMIN K TAB [Concomitant]
  10. AMLODIPINE [Concomitant]
  11. COUMADIN [Concomitant]
  12. MIRALAX [Concomitant]
  13. PREDNISONE TAB [Concomitant]
  14. XYLOCAINE [Concomitant]
  15. AMIODARONE HCL [Concomitant]
  16. CLINDAMYCIN [Concomitant]
  17. CODEINE SULFATE [Concomitant]
  18. DILTIAZEM HCL [Concomitant]
  19. DULCOLAX [Concomitant]
  20. MACROBID [Concomitant]
  21. MEGACE [Concomitant]
  22. POTASSIUM CHLORIDE [Concomitant]
  23. VASOTEC [Concomitant]
  24. ADALAT [Concomitant]
  25. LASIX [Concomitant]
  26. LEXAPRO [Concomitant]
  27. LORATADINE [Concomitant]
  28. LYRICA [Concomitant]
  29. NASONEX [Concomitant]
  30. NEXIUM [Concomitant]
  31. SINGULAIR [Concomitant]
  32. NORVASC [Concomitant]
  33. QUINOLONE [Concomitant]
  34. DIGOXIN [Suspect]
     Dosage: 0.25 MG;QD;PO
     Route: 048
     Dates: start: 20061128, end: 20071129
  35. BACTROBAN [Concomitant]
  36. COLACE [Concomitant]
  37. COZAAR [Concomitant]
  38. NIFEDIPINE [Concomitant]
  39. PREVACID [Concomitant]
  40. PROTONIX [Concomitant]
  41. XANAX [Concomitant]
  42. VITAMIN D [Concomitant]
  43. CYMBALTA [Concomitant]
  44. KAPIDEX [Concomitant]
  45. BIAXIN [Concomitant]
  46. CELESTONE [Concomitant]
  47. DIOVAN [Concomitant]
  48. ENALAPRIL MALEATE [Concomitant]
  49. TOPAMAX [Concomitant]

REACTIONS (148)
  - DYSURIA [None]
  - ABDOMINAL PAIN [None]
  - SPINAL OSTEOARTHRITIS [None]
  - DYSPNOEA [None]
  - PULMONARY HYPERTENSION [None]
  - CHEST DISCOMFORT [None]
  - HYPERTENSIVE HEART DISEASE [None]
  - LYMPHADENOPATHY [None]
  - LYMPHADENITIS [None]
  - VENOUS INJURY [None]
  - HYPERKALAEMIA [None]
  - BRADYCARDIA [None]
  - MUSCLE STRAIN [None]
  - EMOTIONAL DISTRESS [None]
  - ORAL DISCOMFORT [None]
  - SUPRAVENTRICULAR EXTRASYSTOLES [None]
  - HAEMATOCRIT DECREASED [None]
  - RALES [None]
  - NASAL CONGESTION [None]
  - BACK PAIN [None]
  - TRANSIENT ISCHAEMIC ATTACK [None]
  - FLANK PAIN [None]
  - HEADACHE [None]
  - NECK PAIN [None]
  - FATIGUE [None]
  - WEIGHT DECREASED [None]
  - URINARY TRACT INFECTION [None]
  - INTERNATIONAL NORMALISED RATIO DECREASED [None]
  - PARAESTHESIA [None]
  - POLYNEUROPATHY [None]
  - MUSCLE TIGHTNESS [None]
  - BREATH SOUNDS ABNORMAL [None]
  - CARDIOMEGALY [None]
  - HEART RATE IRREGULAR [None]
  - AORTIC ARTERIOSCLEROSIS [None]
  - NASAL MUCOSAL DISORDER [None]
  - COUGH [None]
  - VISION BLURRED [None]
  - JOINT RANGE OF MOTION DECREASED [None]
  - MUSCLE CONTRACTIONS INVOLUNTARY [None]
  - MASS [None]
  - HYPERLIPIDAEMIA [None]
  - BRAIN NATRIURETIC PEPTIDE INCREASED [None]
  - LUMBAR RADICULOPATHY [None]
  - TOXICITY TO VARIOUS AGENTS [None]
  - SINUSITIS [None]
  - TREMOR [None]
  - HIP FRACTURE [None]
  - VENTRICULAR EXTRASYSTOLES [None]
  - PERICARDIAL EFFUSION [None]
  - CONSTIPATION [None]
  - GENERALISED ANXIETY DISORDER [None]
  - OROPHARYNGEAL PAIN [None]
  - TEMPORAL ARTERITIS [None]
  - OCCIPITAL NEURALGIA [None]
  - LOCAL SWELLING [None]
  - PYREXIA [None]
  - RENAL COLIC [None]
  - VARICOSE VEIN [None]
  - BRONCHIAL HYPERREACTIVITY [None]
  - OSTEOPOROSIS POSTMENOPAUSAL [None]
  - MITRAL VALVE INCOMPETENCE [None]
  - NECK MASS [None]
  - HYPOTENSION [None]
  - DYSPHAGIA [None]
  - OESOPHAGEAL STENOSIS [None]
  - ANAEMIA [None]
  - TERMINAL STATE [None]
  - CHRONIC OBSTRUCTIVE PULMONARY DISEASE [None]
  - TACHYCARDIA [None]
  - EAR CANAL ERYTHEMA [None]
  - MYOCARDIAL ISCHAEMIA [None]
  - COSTOVERTEBRAL ANGLE TENDERNESS [None]
  - OSTEOPENIA [None]
  - HYPERTENSION [None]
  - PROCEDURAL PAIN [None]
  - EDENTULOUS [None]
  - UPPER-AIRWAY COUGH SYNDROME [None]
  - INFECTION [None]
  - DECREASED APPETITE [None]
  - INTERNATIONAL NORMALISED RATIO INCREASED [None]
  - URETERAL DISORDER [None]
  - CONTUSION [None]
  - OEDEMA PERIPHERAL [None]
  - DERMATITIS ATOPIC [None]
  - ORTHOPNOEA [None]
  - RENAL FAILURE [None]
  - ECCHYMOSIS [None]
  - AORTIC VALVE INCOMPETENCE [None]
  - PNEUMONIA [None]
  - SWELLING [None]
  - VISUAL IMPAIRMENT [None]
  - SYNCOPE [None]
  - CHEST PAIN [None]
  - GENERAL PHYSICAL CONDITION ABNORMAL [None]
  - RHINORRHOEA [None]
  - DEPRESSION [None]
  - PRURITUS [None]
  - ANGINA UNSTABLE [None]
  - CARDIAC FAILURE CONGESTIVE [None]
  - CARDIAC ARREST [None]
  - DYSLIPIDAEMIA [None]
  - LEFT VENTRICULAR HYPERTROPHY [None]
  - ARTERIAL DISORDER [None]
  - PULMONARY OEDEMA [None]
  - AORTIC VALVE SCLEROSIS [None]
  - NO THERAPEUTIC RESPONSE [None]
  - ARTHRITIS [None]
  - FACIAL PAIN [None]
  - NEUROPATHY PERIPHERAL [None]
  - ANXIETY [None]
  - ASTHENIA [None]
  - MALAISE [None]
  - PAIN IN EXTREMITY [None]
  - CORONARY ARTERY DISEASE [None]
  - GAIT DISTURBANCE [None]
  - DRUG ADMINISTRATION ERROR [None]
  - DYSAESTHESIA [None]
  - SPINAL CORD COMPRESSION [None]
  - MUSCULOSKELETAL DISORDER [None]
  - CAROTID ARTERY STENOSIS [None]
  - SINUS BRADYCARDIA [None]
  - SCAR [None]
  - LUNG INFILTRATION [None]
  - NASAL TURBINATE HYPERTROPHY [None]
  - AORTIC CALCIFICATION [None]
  - RENAL DISORDER [None]
  - RADICULOPATHY [None]
  - ARRHYTHMIA [None]
  - ATRIAL FIBRILLATION [None]
  - SINUS HEADACHE [None]
  - NAUSEA [None]
  - EPISTAXIS [None]
  - RHINITIS ALLERGIC [None]
  - CRYING [None]
  - INSOMNIA [None]
  - DEEP VEIN THROMBOSIS [None]
  - DYSPNOEA EXERTIONAL [None]
  - CARDIAC VALVE DISEASE [None]
  - JAW DISORDER [None]
  - BURNING SENSATION [None]
  - HYPOAESTHESIA [None]
  - TRICUSPID VALVE INCOMPETENCE [None]
  - RED BLOOD CELL SEDIMENTATION RATE INCREASED [None]
  - LEUKOCYTOSIS [None]
  - MITRAL VALVE PROLAPSE [None]
  - BLOOD POTASSIUM INCREASED [None]
  - HAEMOGLOBIN DECREASED [None]
